FAERS Safety Report 4593971-4 (Version None)
Quarter: 2005Q1

REPORT INFORMATION
  Report Type: 
  Country: None (occurrence: None)
  Receive Date: 20050225
  Receipt Date: 20050215
  Transmission Date: 20050727
  Serious: Yes (Hospitalization)
  Sender: FDA-Public Use
  Company Number: GXKR2005ES00603

PATIENT
  Age: 16 Year
  Sex: Female

DRUGS (5)
  1. ISONIAZID [Suspect]
     Indication: TUBERCULOSIS
     Dosage: 250 MG/DAY
     Dates: start: 20020801
  2. CARBAMAZEPINE [Suspect]
     Indication: EPILEPSY
     Dosage: 400 MG/DAY
  3. RIFAMPICIN [Concomitant]
  4. PYRAZINAMIDE [Concomitant]
  5. CLOBAZAM (CLOBAZAM) [Concomitant]

REACTIONS (3)
  - DRUG INTERACTION [None]
  - HEPATIC FAILURE [None]
  - TREMOR [None]
